FAERS Safety Report 6342933-5 (Version None)
Quarter: 2009Q3

REPORT INFORMATION
  Report Type: 
  Country: None (occurrence: None)
  Receive Date: 20090903
  Receipt Date: 20090821
  Transmission Date: 20100115
  Serious: Yes (Hospitalization)
  Sender: FDA-Public Use
  Company Number: JPI-P-008424

PATIENT
  Age: 76 Year
  Sex: Male

DRUGS (3)
  1. FLUVOXAMINE MALEATE [Suspect]
     Indication: DEPRESSION
     Dosage: 75 MG (75 MG,1 IN 1 D),ORAL
     Route: 048
     Dates: start: 20090730, end: 20090731
  2. WARFARIN SODIUM [Concomitant]
  3. NICORANDIL [Concomitant]

REACTIONS (1)
  - INAPPROPRIATE ANTIDIURETIC HORMONE SECRETION [None]
